FAERS Safety Report 7127599-9 (Version None)
Quarter: 2010Q4

REPORT INFORMATION
  Report Type: 
  Country: None (occurrence: None)
  Receive Date: 20101129
  Receipt Date: 20101027
  Transmission Date: 20110411
  Serious: Yes (Hospitalization)
  Sender: FDA-Public Use
  Company Number: CO-AMGEN-COLCT2010002117

PATIENT

DRUGS (2)
  1. ETANERCEPT [Suspect]
     Indication: RHEUMATOID ARTHRITIS
     Dosage: 50 MG, QWK
     Route: 058
     Dates: start: 20080101, end: 20100701
  2. ETANERCEPT [Suspect]
     Dosage: 50 MG, QWK
     Route: 058

REACTIONS (1)
  - HIP ARTHROPLASTY [None]
